FAERS Safety Report 8119355-X (Version None)
Quarter: 2011Q4

REPORT INFORMATION
  Report Type: 
  Country: None (occurrence: None)
  Receive Date: 20111227
  Receipt Date: 20111012
  Transmission Date: 20120403
  Serious: No
  Sender: FDA-Public Use
  Company Number: PHEH2011US05777

PATIENT
  Age: 35 Year
  Sex: Female

DRUGS (1)
  1. GILENYA [Suspect]
     Dosage: 0.5 MG, QD, ORAL
     Route: 048

REACTIONS (5)
  - DIARRHOEA [None]
  - ABDOMINAL DISCOMFORT [None]
  - ABDOMINAL PAIN [None]
  - FLATULENCE [None]
  - NAUSEA [None]
